FAERS Safety Report 9338719 (Version 1)
Quarter: 2013Q2

REPORT INFORMATION
  Report Type: Spontaneous
  Country: US (occurrence: US)
  Receive Date: 20130610
  Receipt Date: 20130610
  Transmission Date: 20140414
  Serious: No
  Sender: FDA-Public Use
  Company Number: US-BAYER-2013-068945

PATIENT
  Age: 38 Year
  Sex: Female

DRUGS (10)
  1. BETASERON [Suspect]
     Dosage: 0.3 MG, QOD
     Route: 058
  2. ASPIRIN [Concomitant]
     Dosage: 325 MG, UNK
  3. FLAXSEED OIL [Concomitant]
  4. NAPROXEN [Concomitant]
     Dosage: 375 MG, UNK
  5. MULTIVITAMIN [Concomitant]
  6. AMANTADINE [Concomitant]
     Dosage: 100 MG, UNK
  7. TOPIRAMATE [Concomitant]
     Dosage: 50 MG, UNK
  8. GABAPENTIN [Concomitant]
     Dosage: 300 MG, UNK
  9. METFORMIN [Concomitant]
     Dosage: 500 MG, UNK
  10. BUTALBITAL [Concomitant]

REACTIONS (3)
  - Muscle twitching [Unknown]
  - Tremor [Unknown]
  - Muscle spasms [Unknown]
